FAERS Safety Report 9207989 (Version 3)
Quarter: 2013Q4

REPORT INFORMATION
  Report Type: Spontaneous
  Country: US (occurrence: US)
  Receive Date: 20130403
  Receipt Date: 20131209
  Transmission Date: 20140711
  Serious: Yes (Hospitalization)
  Sender: FDA-Public Use
  Company Number: US-B.I. PHARMACEUTICALS,INC./RIDGEFIELD-2013-BI-08814BP

PATIENT
  Age: 76 Year
  Sex: Male
  Weight: 83.91 kg

DRUGS (9)
  1. PRADAXA [Suspect]
     Indication: ANTICOAGULANT THERAPY
     Dates: start: 20120313
  2. DIGOXIN [Concomitant]
  3. BUMETANIDE [Concomitant]
  4. METOPROLOL [Concomitant]
  5. LEVOXYL [Concomitant]
  6. SIMVASTATIN [Concomitant]
  7. GLIMEPIRIDE [Concomitant]
  8. KLOR-CON [Concomitant]
  9. ALLOPURINOL [Concomitant]

REACTIONS (1)
  - Gastrointestinal haemorrhage [Unknown]
